FAERS Safety Report 9200375 (Version 1)
Quarter: 2013Q1

REPORT INFORMATION
  Report Type: Spontaneous
  Country: NL (occurrence: NL)
  Receive Date: 20130329
  Receipt Date: 20130329
  Transmission Date: 20140127
  Serious: Yes (Hospitalization)
  Sender: FDA-Public Use
  Company Number: NL-ASTRAZENECA-2013SE18881

PATIENT
  Age: 51 Year
  Sex: Female
  Weight: 67 kg

DRUGS (3)
  1. SEROQUEL [Suspect]
     Indication: MENTAL DISORDER
     Route: 048
     Dates: start: 20130103
  2. ALPRAZOLAM [Suspect]
     Route: 048
     Dates: start: 20120902
  3. TRAZOLAN [Suspect]
     Route: 048
     Dates: start: 201209

REACTIONS (5)
  - Depersonalisation [Recovering/Resolving]
  - Apathy [Recovering/Resolving]
  - Panic reaction [Recovering/Resolving]
  - Fatigue [Recovering/Resolving]
  - Tremor [Recovering/Resolving]
